FAERS Safety Report 9549904 (Version 2)
Quarter: 2014Q1

REPORT INFORMATION
  Report Type: Spontaneous
  Country: CA (occurrence: CA)
  Receive Date: 20130924
  Receipt Date: 20140217
  Transmission Date: 20141002
  Serious: Yes (Hospitalization)
  Sender: FDA-Public Use
  Company Number: CA-GLAXOSMITHKLINE-A1022419A

PATIENT
  Age: 46 Year
  Sex: Female
  Weight: 53.2 kg

DRUGS (4)
  1. BENLYSTA [Suspect]
     Indication: SYSTEMIC LUPUS ERYTHEMATOSUS
     Dosage: 570MG SEE DOSAGE TEXT
     Route: 042
     Dates: start: 20130214
  2. PREDNISONE [Concomitant]
  3. NAPROXEN [Concomitant]
  4. METHOTREXATE [Concomitant]

REACTIONS (13)
  - Bone pain [Unknown]
  - Arthralgia [Unknown]
  - Acne [Unknown]
  - Infusion site reaction [Unknown]
  - Local swelling [Unknown]
  - Rash macular [Unknown]
  - Sinusitis [Unknown]
  - Bronchitis [Unknown]
  - Limb operation [Unknown]
  - Fatigue [Unknown]
  - Pain [Unknown]
  - Fall [Unknown]
  - Limb injury [Unknown]
